FAERS Safety Report 9587891 (Version 3)
Quarter: 2013Q4

REPORT INFORMATION
  Report Type: Spontaneous
  Country: US (occurrence: US)
  Receive Date: 20131003
  Receipt Date: 20131203
  Transmission Date: 20140711
  Serious: Yes (Hospitalization)
  Sender: FDA-Public Use
  Company Number: US-GLAXOSMITHKLINE-A1043704A

PATIENT
  Sex: Female

DRUGS (6)
  1. FLOVENT [Suspect]
     Indication: PRODUCT USED FOR UNKNOWN INDICATION
     Dosage: 250MCG TWICE PER DAY
     Route: 055
  2. ZYPREXA [Concomitant]
  3. VALIUM [Concomitant]
  4. ATROVENT INHALER [Concomitant]
  5. PROAIR HFA [Concomitant]
  6. MIRALAX [Concomitant]

REACTIONS (3)
  - Investigation [Unknown]
  - Therapeutic response decreased [Unknown]
  - Product quality issue [Unknown]
